FAERS Safety Report 5260831-5 (Version None)
Quarter: 2007Q1

REPORT INFORMATION
  Report Type: 
  Country: None (occurrence: None)
  Receive Date: 20070309
  Receipt Date: 20070307
  Transmission Date: 20070707
  Serious: Yes (Death)
  Sender: FDA-Public Use
  Company Number: US-BRISTOL-MYERS SQUIBB COMPANY-13654181

PATIENT
  Age: 76 Year
  Sex: Male

DRUGS (9)
  1. GLUCOPHAGE [Suspect]
     Indication: DIABETES MELLITUS NON-INSULIN-DEPENDENT
     Route: 048
     Dates: start: 20000215, end: 20061228
  2. PRAVACHOL [Concomitant]
  3. COUMADIN [Concomitant]
  4. TOPROL-XL [Concomitant]
  5. NTG SL [Concomitant]
  6. ACTONEL [Concomitant]
  7. ACTOS [Concomitant]
  8. ACCUPRIL [Concomitant]
  9. LASIX [Concomitant]

REACTIONS (1)
  - LUNG NEOPLASM MALIGNANT [None]
